FAERS Safety Report 5251429-3 (Version None)
Quarter: 2007Q1

REPORT INFORMATION
  Report Type: 
  Country: None (occurrence: None)
  Receive Date: 20070228
  Receipt Date: 20060804
  Transmission Date: 20070707
  Serious: Yes (Disabling, Other)
  Sender: FDA-Public Use
  Company Number: US-GLAXOSMITHKLINE-A0604706A

PATIENT
  Age: 33 Year
  Sex: Female

DRUGS (5)
  1. LAMICTAL [Suspect]
     Indication: BIPOLAR DISORDER
     Dosage: 25MG PER DAY
     Route: 048
     Dates: start: 20060411, end: 20060414
  2. BUPROPION HYDROCHLORIDE [Suspect]
     Indication: DRUG USE FOR UNKNOWN INDICATION
     Route: 065
  3. DEPAKOTE [Concomitant]
  4. PAXIL CR [Concomitant]
     Indication: BIPOLAR DISORDER
     Route: 048
     Dates: start: 19980101
  5. LORAZEPAM [Concomitant]
     Indication: BIPOLAR DISORDER
     Dosage: .5MG AS REQUIRED
     Route: 048

REACTIONS (2)
  - CONVULSION [None]
  - RASH [None]
